FAERS Safety Report 4532533-1 (Version None)
Quarter: 2004Q4

REPORT INFORMATION
  Report Type: 
  Country: None (occurrence: None)
  Receive Date: 20041206
  Receipt Date: 20041007
  Transmission Date: 20050328
  Serious: No
  Sender: FDA-Public Use
  Company Number: USA041080437

PATIENT
  Sex: Male

DRUGS (2)
  1. ALIMTA [Suspect]
  2. VITAMIN SUPPLEMENTATION [Concomitant]

REACTIONS (1)
  - RASH [None]
